FAERS Safety Report 14858332 (Version 2)
Quarter: 2018Q2

REPORT INFORMATION
  Report Type: Spontaneous
  Country: ES (occurrence: ES)
  Receive Date: 20180508
  Receipt Date: 20180611
  Transmission Date: 20180711
  Serious: No
  Sender: FDA-Public Use
  Company Number: ES-SUN PHARMACEUTICAL INDUSTRIES LTD-2018RR-172001

PATIENT
  Age: 64 Year
  Sex: Male

DRUGS (5)
  1. DICLOFENAC [Suspect]
     Active Substance: DICLOFENAC
     Indication: MUSCULOSKELETAL PAIN
     Dosage: 50 MG, UNK
     Route: 048
     Dates: start: 20180309
  2. NAPROXEN. [Interacting]
     Active Substance: NAPROXEN
     Indication: MUSCULOSKELETAL PAIN
     Dosage: 550 MG, UNK
     Route: 048
     Dates: start: 20180306
  3. ENANTYUM 25 MG COMPRIMIDOS, 20 COMPRIMIDOS [Interacting]
     Active Substance: DEXKETOPROFEN TROMETAMOL
     Indication: MUSCULOSKELETAL PAIN
     Dosage: 25 MG, UNK
     Route: 048
     Dates: start: 20180310, end: 20180311
  4. IBUPROFENO [Interacting]
     Active Substance: IBUPROFEN
     Indication: MUSCULOSKELETAL PAIN
     Dosage: 600 MG, UNK
     Route: 048
     Dates: start: 20180228
  5. DIAZEPAM. [Concomitant]
     Active Substance: DIAZEPAM
     Indication: MUSCULOSKELETAL PAIN
     Dosage: 10 MG, UNK
     Route: 048
     Dates: start: 20180309, end: 20180311

REACTIONS (3)
  - Depressed level of consciousness [Recovered/Resolved]
  - Renal tubular necrosis [Recovered/Resolved]
  - Hyperkalaemia [Recovered/Resolved]

NARRATIVE: CASE EVENT DATE: 20180311
